FAERS Safety Report 8114953-1 (Version None)
Quarter: 2012Q1

REPORT INFORMATION
  Report Type: 
  Country: None (occurrence: None)
  Receive Date: 20120206
  Receipt Date: 20120127
  Transmission Date: 20120608
  Serious: No
  Sender: FDA-Public Use
  Company Number: US-B.I. PHARMACEUTICALS,INC./RIDGEFIELD-2012-BP-01705BP

PATIENT
  Sex: Female

DRUGS (9)
  1. BYSTOLIC [Concomitant]
     Indication: HYPERTENSION
     Dosage: 20 MG
     Route: 048
     Dates: start: 20080101
  2. ALPHA-LIPOIC [Concomitant]
     Indication: PROPHYLAXIS
     Dosage: 400 MG
     Route: 048
  3. PRADAXA [Suspect]
     Indication: ATRIAL FIBRILLATION
     Dosage: 300 MG
     Route: 048
     Dates: start: 20110101
  4. PREDNISONE TAB [Concomitant]
     Indication: RHEUMATOID ARTHRITIS
     Dosage: 2.5 MG
     Route: 048
     Dates: start: 20090101
  5. STOOL SOFTENER [Concomitant]
     Indication: PROPHYLAXIS
     Dosage: 100 MG
     Route: 048
  6. TORSEMIDE [Concomitant]
     Route: 048
  7. LOVAZA [Concomitant]
     Indication: PROPHYLAXIS
     Dosage: 2400 MG
     Route: 048
  8. VITAMIN D [Concomitant]
     Indication: PROPHYLAXIS
     Dosage: 4000 MG
     Route: 048
  9. DIGOXIN [Concomitant]
     Indication: HYPERTENSION
     Dosage: 0.12 MG
     Route: 048

REACTIONS (2)
  - VEIN DISORDER [None]
  - SKIN DISCOLOURATION [None]
